FAERS Safety Report 17881696 (Version 1)
Quarter: 2020Q2

REPORT INFORMATION
  Report Type: Report from Study
  Country: IN (occurrence: IN)
  Receive Date: 20200610
  Receipt Date: 20200610
  Transmission Date: 20200714
  Serious: Yes (Other)
  Sender: FDA-Public Use
  Company Number: NVSC2019IN086461

PATIENT
  Age: 38 Year
  Sex: Male

DRUGS (4)
  1. SCAPHO [Suspect]
     Active Substance: SECUKINUMAB
     Indication: PSORIASIS
  2. SCAPHO [Suspect]
     Active Substance: SECUKINUMAB
     Indication: RENAL DISORDER
  3. SCAPHO [Suspect]
     Active Substance: SECUKINUMAB
     Indication: PSORIATIC ARTHROPATHY
     Dosage: 150 MG, QMO
     Route: 058
     Dates: start: 20191227
  4. SCAPHO [Suspect]
     Active Substance: SECUKINUMAB
     Indication: PAIN

REACTIONS (4)
  - Product prescribing error [Unknown]
  - Product use in unapproved indication [Unknown]
  - Renal failure [Unknown]
  - Off label use [Unknown]
